FAERS Safety Report 6928237-8 (Version None)
Quarter: 2010Q3

REPORT INFORMATION
  Report Type: 
  Country: None (occurrence: None)
  Receive Date: 20100810
  Receipt Date: 20100728
  Transmission Date: 20110219
  Serious: Yes (Hospitalization)
  Sender: FDA-Public Use
  Company Number: 016631

PATIENT

DRUGS (1)
  1. XYZAL [Suspect]

REACTIONS (2)
  - DEHYDRATION [None]
  - DRUG INEFFECTIVE [None]
